FAERS Safety Report 17558424 (Version 1)
Quarter: 2020Q1

REPORT INFORMATION
  Report Type: Spontaneous
  Country: NL (occurrence: NL)
  Receive Date: 20200319
  Receipt Date: 20200319
  Transmission Date: 20200409
  Serious: Yes (Death, Life-Threatening, Other)
  Sender: FDA-Public Use
  Company Number: NL-AUROBINDO-AUR-APL-2020-013486

PATIENT
  Age: 23 Year
  Sex: Male
  Weight: 65 kg

DRUGS (4)
  1. LORAZEPAM. [Concomitant]
     Active Substance: LORAZEPAM
     Indication: PRODUCT USED FOR UNKNOWN INDICATION
     Dosage: 1 MILLIGRAM
     Route: 065
  2. OLANZAPINE 10 MG ORODISPERSIBLE TABLETS [Suspect]
     Active Substance: OLANZAPINE
     Indication: PSYCHOTIC DISORDER
     Dosage: 15 MILLIGRAM, ONCE A DAY (1 DD 1,5 STUKS)
     Route: 065
     Dates: start: 20191115, end: 20200103
  3. CLOZAPINE 100 MG TABLET [Suspect]
     Active Substance: CLOZAPINE
     Indication: PSYCHOTIC DISORDER
     Dosage: 100 MILLIGRAM, TWO TIMES A DAY (OPBOUWSCHEMA)
     Route: 065
     Dates: start: 20191211, end: 20200102
  4. OLANZAPINE 10 MG ORODISPERSIBLE TABLETS [Suspect]
     Active Substance: OLANZAPINE
     Dosage: UNK
     Route: 065

REACTIONS (2)
  - Faecaloma [Fatal]
  - Megacolon [Fatal]

NARRATIVE: CASE EVENT DATE: 20200102
